FAERS Safety Report 8203842-X (Version None)
Quarter: 2012Q1

REPORT INFORMATION
  Report Type: 
  Country: None (occurrence: None)
  Receive Date: 20120308
  Receipt Date: 20120228
  Transmission Date: 20120608
  Serious: Yes (Hospitalization)
  Sender: FDA-Public Use
  Company Number: 2012SP011287

PATIENT
  Age: 82 Year
  Sex: Female

DRUGS (9)
  1. POLYETHYLENE GLYCOL [Suspect]
     Indication: PRODUCT USED FOR UNKNOWN INDICATION
     Dosage: PO
     Route: 048
     Dates: end: 20111207
  2. DEPAIDE (VALPROMIDE) [Suspect]
     Indication: PRODUCT USED FOR UNKNOWN INDICATION
     Dosage: 500 MG, BID, PO
     Route: 048
     Dates: end: 20111207
  3. MIRTAZAPINE [Suspect]
     Indication: PRODUCT USED FOR UNKNOWN INDICATION
     Dosage: 15 MG, QD, PO
     Route: 048
     Dates: end: 20111207
  4. MODOPAR (MADOPAR 00349201/) [Suspect]
     Indication: PRODUCT USED FOR UNKNOWN INDICATION
     Dosage: 3 DF, QD
  5. DOMPERIDONE (MFR UNKNOWN) (DOKMPERIDONE) [Suspect]
     Indication: PRODUCT USED FOR UNKNOWN INDICATION
     Dosage: PRN, PO
     Route: 048
  6. VASERETIC [Suspect]
     Indication: PRODUCT USED FOR UNKNOWN INDICATION
     Dosage: 1 DF, QD
     Dates: end: 20111207
  7. ESOMEPRAZOLE (MFR UNKNOWN) (ESOMEPRAZOLE) [Suspect]
     Indication: PRODUCT USED FOR UNKNOWN INDICATION
     Dosage: 20 MG, QD
     Dates: end: 20111207
  8. TRAMADOL (UNKNOWN MFR) (TRAMADOL /00599201/) [Suspect]
     Indication: PRODUCT USED FOR UNKNOWN INDICATION
     Dosage: PRN PO
     Route: 048
     Dates: end: 20111206
  9. URBANYL [Concomitant]

REACTIONS (8)
  - FALL [None]
  - VOMITING [None]
  - BURNS SECOND DEGREE [None]
  - HYPONATRAEMIA [None]
  - ASTHENIA [None]
  - DISORIENTATION [None]
  - DIARRHOEA [None]
  - RHABDOMYOLYSIS [None]
